FAERS Safety Report 5278127-4 (Version None)
Quarter: 2007Q1

REPORT INFORMATION
  Report Type: 
  Country: None (occurrence: None)
  Receive Date: 20061213
  Receipt Date: 20041102
  Transmission Date: 20070707
  Serious: Yes (Hospitalization)
  Sender: FDA-Public Use
  Company Number: 2004UW19020

PATIENT
  Age: 87 Year
  Sex: Female
  Weight: 77.1115 kg

DRUGS (6)
  1. SEROQUEL [Suspect]
     Indication: AGGRESSION
     Dosage: 25 MG BID PO
     Route: 048
     Dates: start: 20040828, end: 20040901
  2. TOPROL-XL [Concomitant]
  3. PRILOSEC [Concomitant]
  4. ATIVAN [Concomitant]
  5. CELEXA [Concomitant]
  6. ARICEPT [Concomitant]

REACTIONS (1)
  - EXTRAPYRAMIDAL DISORDER [None]
